FAERS Safety Report 6612492-8 (Version None)
Quarter: 2010Q1

REPORT INFORMATION
  Report Type: 
  Country: None (occurrence: None)
  Receive Date: 20100223
  Receipt Date: 20100218
  Transmission Date: 20100710
  Serious: Yes (Death)
  Sender: FDA-Public Use
  Company Number: 2009SP022491

PATIENT
  Age: 31 Year
  Sex: Female
  Weight: 67.5 kg

DRUGS (3)
  1. IMPLANON [Suspect]
     Indication: CONTRACEPTION
     Dosage: 1 DF; ; SC
     Route: 058
     Dates: start: 20021001, end: 20060101
  2. IMPLANON [Suspect]
     Indication: CONTRACEPTION
     Dosage: 1 DF; ; SC
     Route: 058
     Dates: start: 20060101, end: 20100124
  3. IMPLANON [Suspect]

REACTIONS (6)
  - COLON CANCER [None]
  - EMPHYSEMATOUS CYSTITIS [None]
  - FEMALE GENITAL TRACT FISTULA [None]
  - GENERAL PHYSICAL HEALTH DETERIORATION [None]
  - MALIGNANT NEOPLASM PROGRESSION [None]
  - OVARIAN CANCER RECURRENT [None]
